FAERS Safety Report 7367414-1 (Version None)
Quarter: 2011Q1

REPORT INFORMATION
  Report Type: 
  Country: None (occurrence: None)
  Receive Date: 20110322
  Receipt Date: 20110315
  Transmission Date: 20110831
  Serious: Yes (Hospitalization)
  Sender: FDA-Public Use
  Company Number: NL-MEDIMMUNE-MEDI-0012938

PATIENT
  Sex: Female
  Weight: 6.64 kg

DRUGS (5)
  1. SYNAGIS [Suspect]
     Route: 030
     Dates: start: 20101001, end: 20110215
  2. TETANUS ANTITOXIN [Suspect]
     Indication: PROPHYLAXIS
  3. SYNAGIS [Suspect]
     Route: 030
     Dates: start: 20110315
  4. DIPHTHERIA,TETANUS AND POLIOMYELITIS VAC [Suspect]
  5. PNEUMOCCEN VACCINATION [Suspect]
     Indication: PROPHYLAXIS

REACTIONS (3)
  - DIARRHOEA [None]
  - FLUID INTAKE REDUCED [None]
  - PYREXIA [None]
